FAERS Safety Report 14900121 (Version 3)
Quarter: 2018Q2

REPORT INFORMATION
  Report Type: Report from Study
  Country: None (occurrence: PR)
  Receive Date: 20180516
  Receipt Date: 20180526
  Transmission Date: 20180711
  Serious: Yes (Death, Other)
  Sender: FDA-Public Use
  Company Number: PR-ABBVIE-18K-131-2356797-00

PATIENT
  Age: 80 Year
  Sex: Female

DRUGS (2)
  1. HUMIRA [Suspect]
     Active Substance: ADALIMUMAB
     Indication: RHEUMATOID ARTHRITIS
     Route: 058
     Dates: start: 201804, end: 20180501
  2. METHOTREXATE. [Concomitant]
     Active Substance: METHOTREXATE
     Indication: ARTHRITIS
     Route: 048

REACTIONS (2)
  - Myocardial infarction [Fatal]
  - Coronary artery occlusion [Unknown]

NARRATIVE: CASE EVENT DATE: 2018
